FAERS Safety Report 13415419 (Version 1)
Quarter: 2017Q2

REPORT INFORMATION
  Report Type: Spontaneous
  Country: GB (occurrence: GB)
  Receive Date: 20170407
  Receipt Date: 20170407
  Transmission Date: 20170830
  Serious: Yes (Other)
  Sender: FDA-Public Use
  Company Number: GB-TEVA-754744ACC

PATIENT
  Sex: Male

DRUGS (2)
  1. SILDENAFIL CITRATE. [Suspect]
     Active Substance: SILDENAFIL CITRATE
     Dosage: UNKNOWN
  2. ALPROSTADIL. [Suspect]
     Active Substance: ALPROSTADIL
     Dosage: UNKNOWN

REACTIONS (2)
  - Hepatic enzyme increased [Unknown]
  - Hepatic fibrosis [Unknown]
